FAERS Safety Report 26201895 (Version 1)
Quarter: 2025Q4

REPORT INFORMATION
  Report Type: Spontaneous
  Country: EU (occurrence: EU)
  Receive Date: 20251226
  Receipt Date: 20251226
  Transmission Date: 20260118
  Serious: Yes (Life-Threatening, Hospitalization, Other)
  Sender: Steriscience PTE
  Company Number: EU-STERISCIENCE B.V.-2025-ST-001734

PATIENT
  Age: 40 Year
  Sex: Female

DRUGS (7)
  1. SODIUM BICARBONATE [Suspect]
     Active Substance: SODIUM BICARBONATE
     Indication: Electrocardiogram QRS complex prolonged
     Dosage: UNK
     Route: 065
  2. SODIUM BICARBONATE [Suspect]
     Active Substance: SODIUM BICARBONATE
     Indication: Life support
  3. CALCIUM [Suspect]
     Active Substance: CALCIUM
     Indication: Electrocardiogram QRS complex prolonged
     Dosage: UNK
     Route: 065
  4. AMIODARONE [Suspect]
     Active Substance: AMIODARONE
     Indication: Ventricular fibrillation
     Dosage: UNK
     Route: 065
  5. MAGNESIUM SULFATE [Suspect]
     Active Substance: MAGNESIUM SULFATE
     Indication: Ventricular fibrillation
     Dosage: UNK
     Route: 065
  6. EPINEPHRINE [Suspect]
     Active Substance: EPINEPHRINE
     Indication: Life support
     Dosage: UNK
     Route: 065
  7. NOREPINEPHRINE BITARTRATE [Suspect]
     Active Substance: NOREPINEPHRINE BITARTRATE
     Indication: Life support
     Dosage: UNK
     Route: 065

REACTIONS (5)
  - Ventricular fibrillation [None]
  - Pulseless electrical activity [None]
  - Bradycardia [None]
  - Disease progression [None]
  - Drug ineffective for unapproved indication [Unknown]
